FAERS Safety Report 18288692 (Version 1)
Quarter: 2020Q3

REPORT INFORMATION
  Report Type: Spontaneous
  Country: US (occurrence: US)
  Receive Date: 20200921
  Receipt Date: 20200921
  Transmission Date: 20201103
  Serious: Yes (Death, Other)
  Sender: FDA-Public Use
  Company Number: US-GILEAD-2020-0495769

PATIENT
  Age: 72 Year
  Sex: Female
  Weight: 63.5 kg

DRUGS (15)
  1. METRONIDAZOLE. [Concomitant]
     Active Substance: METRONIDAZOLE
  2. DEXTROSE. [Concomitant]
     Active Substance: DEXTROSE
  3. HEPARIN [Concomitant]
     Active Substance: HEPARIN SODIUM
  4. HYDROCORTISONE. [Concomitant]
     Active Substance: HYDROCORTISONE
  5. REMDESIVIR. [Suspect]
     Active Substance: REMDESIVIR
     Indication: COVID-19 PNEUMONIA
     Dosage: 100 MG, QD
     Route: 042
     Dates: start: 20200714, end: 20200718
  6. DEXAMETHASONE. [Concomitant]
     Active Substance: DEXAMETHASONE
  7. ENOXAPARIN [Concomitant]
     Active Substance: ENOXAPARIN
  8. AZITHROMYCIN ANHYDROUS. [Concomitant]
     Active Substance: AZITHROMYCIN ANHYDROUS
  9. CEFTRIAXONE. [Concomitant]
     Active Substance: CEFTRIAXONE
  10. EPINEPHRINE. [Concomitant]
     Active Substance: EPINEPHRINE
  11. CEFEPIME [Concomitant]
     Active Substance: CEFEPIME HYDROCHLORIDE
  12. VANCOMYCIN [Concomitant]
     Active Substance: VANCOMYCIN
  13. FAMOTIDINE. [Concomitant]
     Active Substance: FAMOTIDINE
  14. MELATONIN [Concomitant]
     Active Substance: MELATONIN
  15. CALCIUM CHLORIDE. [Concomitant]
     Active Substance: CALCIUM CHLORIDE

REACTIONS (1)
  - Cardiac arrest [Fatal]

NARRATIVE: CASE EVENT DATE: 20200813
